FAERS Safety Report 19207033 (Version 6)
Quarter: 2025Q4

REPORT INFORMATION
  Report Type: Report from Study
  Country: CA (occurrence: CA)
  Receive Date: 20210503
  Receipt Date: 20251120
  Transmission Date: 20260118
  Serious: Yes (Other)
  Sender: TAKEDA
  Company Number: CA-TAKEDA-2021TUS027240

PATIENT
  Age: 58 Year
  Sex: Female

DRUGS (2)
  1. VEDOLIZUMAB [Suspect]
     Active Substance: VEDOLIZUMAB
     Indication: Crohn^s disease
     Dosage: 300 MILLIGRAM
  2. PREDNISONE [Concomitant]
     Active Substance: PREDNISONE
     Dosage: UNK

REACTIONS (9)
  - Crohn^s disease [Not Recovered/Not Resolved]
  - Mouth ulceration [Unknown]
  - Fistula [Unknown]
  - Impaired work ability [Unknown]
  - Social problem [Unknown]
  - Malaise [Unknown]
  - Abdominal pain [Unknown]
  - Anal fissure [Unknown]
  - Arthralgia [Unknown]
